FAERS Safety Report 5943713-2 (Version None)
Quarter: 2008Q4

REPORT INFORMATION
  Report Type: 
  Country: None (occurrence: None)
  Receive Date: 20081106
  Receipt Date: 20080820
  Transmission Date: 20090506
  Serious: No
  Sender: FDA-Public Use
  Company Number: US-ABBOTT-08P-163-0471844-00

PATIENT
  Sex: Female
  Weight: 108.96 kg

DRUGS (13)
  1. KALETRA [Suspect]
     Indication: HIV TEST POSITIVE
     Dosage: 200/50 MG TWICE DAILY
     Route: 048
     Dates: start: 20050101, end: 20080610
  2. NEVIRAPINE [Concomitant]
     Indication: HIV TEST POSITIVE
     Route: 048
     Dates: start: 20080610
  3. LAMIVUDINE + ZIDOVUDINE [Concomitant]
     Indication: HIV TEST POSITIVE
     Dosage: 300/150 MG TWICE DAILY - AZT COMBINATION
     Route: 048
     Dates: start: 19980101
  4. LISINOPRIL [Concomitant]
     Indication: HYPERTENSION
     Route: 048
     Dates: start: 19930101
  5. ESOMEPRAZOLE MAGNESIUM [Concomitant]
     Indication: DYSPEPSIA
     Route: 048
     Dates: start: 19980101
  6. RANITIDINE [Concomitant]
     Indication: DYSPEPSIA
     Dosage: 150 MG AT BED TIME
     Route: 048
     Dates: start: 19980101
  7. MONTELUKAST SODIUM [Concomitant]
     Indication: SEASONAL ALLERGY
     Route: 048
     Dates: start: 20060101
  8. ACYCLOVIR SODIUM [Concomitant]
     Indication: HIV TEST POSITIVE
     Dosage: MAINTENANCE DOSE THIS YEAR
     Route: 048
     Dates: start: 19980101
  9. FISH OIL [Concomitant]
     Indication: BLOOD TRIGLYCERIDES INCREASED
     Route: 048
     Dates: start: 20050101
  10. MULTI-VITAMINS [Concomitant]
     Indication: VITAMIN SUPPLEMENTATION
     Route: 048
     Dates: start: 19980101
  11. NYSTATIN [Concomitant]
     Indication: FUNGAL SKIN INFECTION
     Route: 061
     Dates: start: 19980101
  12. NYSTATIN [Concomitant]
     Indication: RASH
  13. VICODIN [Concomitant]
     Indication: PAIN
     Dosage: 7.5/500 MG AS NEEDED
     Route: 048
     Dates: start: 20030101

REACTIONS (4)
  - CUSHING'S SYNDROME [None]
  - PLANTAR FASCIITIS [None]
  - STRESS [None]
  - WEIGHT INCREASED [None]
